FAERS Safety Report 10198279 (Version 1)
Quarter: 2014Q2

REPORT INFORMATION
  Report Type: Spontaneous
  Country: BD (occurrence: BD)
  Receive Date: 20140527
  Receipt Date: 20140527
  Transmission Date: 20141212
  Serious: Yes (Death)
  Sender: FDA-Public Use
  Company Number: BD-SA-2014SA063228

PATIENT
  Age: 45 Year
  Sex: Female
  Weight: 75 kg

DRUGS (5)
  1. TAXOTERE [Suspect]
     Indication: OVARIAN CANCER
     Dosage: FORM: INFUSION
     Route: 042
     Dates: start: 20140508, end: 20140508
  2. AVIL [Concomitant]
     Indication: ANTIALLERGIC THERAPY
     Dosage: 45.5 MG/ 2 ML; IV INFUSION
     Route: 042
     Dates: start: 20140508, end: 20140508
  3. ONDANSETRON [Concomitant]
     Indication: ANTIALLERGIC THERAPY
     Dosage: 2MG/ML; IV INFUSION
     Route: 042
     Dates: start: 20140508, end: 20140508
  4. RANITIDINE [Concomitant]
     Indication: ANTIALLERGIC THERAPY
     Dosage: 50 MG/ 2 ML; IV INFUSION
     Route: 042
     Dates: start: 20140508, end: 20140508
  5. NORMAL SALINE [Concomitant]

REACTIONS (1)
  - Cardiac arrest [Fatal]
